FAERS Safety Report 20372402 (Version 2)
Quarter: 2022Q1

REPORT INFORMATION
  Report Type: Report from Study
  Country: FR (occurrence: FR)
  Receive Date: 20220124
  Receipt Date: 20220215
  Transmission Date: 20220423
  Serious: Yes (Other)
  Sender: FDA-Public Use
  Company Number: FR-ABBVIE-22K-056-4243759-00

PATIENT
  Age: 83 Year
  Sex: Male

DRUGS (2)
  1. CARBIDOPA\LEVODOPA [Suspect]
     Active Substance: CARBIDOPA\LEVODOPA
     Indication: Parkinson^s disease
     Route: 050
     Dates: start: 202009
  2. CARBIDOPA\LEVODOPA [Suspect]
     Active Substance: CARBIDOPA\LEVODOPA

REACTIONS (5)
  - Thrombosis [Recovering/Resolving]
  - Stoma site pain [Recovering/Resolving]
  - Stoma site inflammation [Recovering/Resolving]
  - Stoma site erythema [Recovering/Resolving]
  - Stoma site induration [Recovering/Resolving]

NARRATIVE: CASE EVENT DATE: 20220119
